FAERS Safety Report 15036567 (Version 1)
Quarter: 2018Q2

REPORT INFORMATION
  Report Type: Spontaneous
  Country: DK (occurrence: DK)
  Receive Date: 20180620
  Receipt Date: 20180620
  Transmission Date: 20180711
  Serious: Yes (Death)
  Sender: FDA-Public Use
  Company Number: DK-EPIC PHARMA LLC-2018EPC00293

PATIENT

DRUGS (2)
  1. UNSPECIFIED OPIOIDS (UNSPECIFIED) UNKNOWN [Suspect]
     Active Substance: UNSPECIFIED INGREDIENT
     Route: 065
  2. CITALOPRAM [Suspect]
     Active Substance: CITALOPRAM HYDROBROMIDE
     Route: 065

REACTIONS (2)
  - Death [Fatal]
  - Toxicity to various agents [Fatal]
